FAERS Safety Report 4628219-5 (Version None)
Quarter: 2005Q2

REPORT INFORMATION
  Report Type: 
  Country: None (occurrence: None)
  Receive Date: 20050401
  Receipt Date: 20020125
  Transmission Date: 20051028
  Serious: Yes (Disabling)
  Sender: FDA-Public Use
  Company Number: 3309

PATIENT
  Age: 3 Year
  Sex: Female

DRUGS (7)
  1. METHOTREXATE [Suspect]
     Indication: ACUTE LYMPHOCYTIC LEUKAEMIA
  2. CYTARABINE [Suspect]
     Indication: ACUTE LYMPHOCYTIC LEUKAEMIA
  3. HYDROCORTISONE [Suspect]
     Indication: ACUTE LYMPHOCYTIC LEUKAEMIA
  4. VINCRISTINE [Suspect]
     Indication: ACUTE LYMPHOCYTIC LEUKAEMIA
  5. ELSPAR [Concomitant]
  6. METHOTREXATE [Concomitant]
  7. MERCAPTOPURINE [Concomitant]

REACTIONS (7)
  - AUTOIMMUNE DISORDER [None]
  - CSF PROTEIN INCREASED [None]
  - GAIT DISTURBANCE [None]
  - NEUROTOXICITY [None]
  - NO REACTION ON PREVIOUS EXPOSURE TO DRUG [None]
  - PERIPHERAL MOTOR NEUROPATHY [None]
  - RADICULOPATHY [None]
